FAERS Safety Report 12374959 (Version 2)
Quarter: 2016Q2

REPORT INFORMATION
  Report Type: Spontaneous
  Country: ES (occurrence: ES)
  Receive Date: 20160517
  Receipt Date: 20160531
  Transmission Date: 20160815
  Serious: Yes (Other)
  Sender: FDA-Public Use
  Company Number: ES-009507513-1604ESP015360

PATIENT
  Age: 20 Year
  Sex: Female
  Weight: 64 kg

DRUGS (1)
  1. NUVARING [Suspect]
     Active Substance: ETHINYL ESTRADIOL\ETONOGESTREL
     Indication: CONTRACEPTION
     Dosage: UNK
     Route: 067
     Dates: start: 201602, end: 20160429

REACTIONS (11)
  - Urethritis noninfective [Recovered/Resolved]
  - Depressed mood [Recovered/Resolved]
  - Genito-pelvic pain/penetration disorder [Recovering/Resolving]
  - Vaginal discharge [Unknown]
  - Vulvovaginal discomfort [Recovering/Resolving]
  - Nervousness [Recovered/Resolved]
  - Drug prescribing error [Unknown]
  - Drug administration error [Unknown]
  - Urinary tract infection [Recovered/Resolved]
  - Anxiety [Recovered/Resolved]
  - Incorrect drug administration duration [Unknown]

NARRATIVE: CASE EVENT DATE: 201602
